FAERS Safety Report 8589251 (Version 4)
Quarter: 2013Q2

REPORT INFORMATION
  Report Type: Spontaneous
  Country: FR (occurrence: FR)
  Receive Date: 20120531
  Receipt Date: 20130408
  Transmission Date: 20140414
  Serious: Yes (Hospitalization)
  Sender: FDA-Public Use
  Company Number: FR-TEVA-340582ISR

PATIENT
  Age: 72 Year
  Sex: Female

DRUGS (5)
  1. AZILECT [Suspect]
     Indication: PARKINSONISM
     Dates: start: 20110701, end: 20111001
  2. CYMBALTA [Suspect]
     Dates: start: 20091101, end: 20111001
  3. DITROPAN [Suspect]
     Dates: start: 20071101, end: 20111001
  4. EXELON [Suspect]
     Dates: start: 20110901, end: 20111001
  5. XENAZINE [Suspect]
     Dates: start: 20071001, end: 20100301

REACTIONS (6)
  - Leukoencephalopathy [Unknown]
  - Parkinsonism [Unknown]
  - Iatrogenic injury [Unknown]
  - Cerebral atrophy [Unknown]
  - Cognitive disorder [Unknown]
  - Confusional state [Unknown]
